FAERS Safety Report 21100549 (Version 2)
Quarter: 2022Q3

REPORT INFORMATION
  Report Type: Spontaneous
  Country: DK (occurrence: DK)
  Receive Date: 20220719
  Receipt Date: 20220725
  Transmission Date: 20221026
  Serious: Yes (Life-Threatening, Hospitalization, Other)
  Sender: FDA-Public Use
  Company Number: DK-DENTSPLY-2022SCDP000194

PATIENT
  Age: 82 Year
  Sex: Female
  Weight: 70 kg

DRUGS (1)
  1. LIDOCAINE [Suspect]
     Active Substance: LIDOCAINE
     Indication: Local anaesthesia
     Dosage: 2400 MILLIGRAM TOTAL LIDOCAINE INJECTION (8 TIMES THE TOXIC DOSE)

REACTIONS (5)
  - Atrioventricular block first degree [Recovered/Resolved]
  - Product communication issue [Recovered/Resolved]
  - Altered state of consciousness [Recovered/Resolved]
  - Local anaesthetic systemic toxicity [Recovered/Resolved]
  - Overdose [Recovered/Resolved]
